FAERS Safety Report 23657895 (Version 2)
Quarter: 2024Q1

REPORT INFORMATION
  Report Type: Spontaneous
  Country: US (occurrence: US)
  Receive Date: 20240321
  Receipt Date: 20240327
  Transmission Date: 20240409
  Serious: Yes (Life-Threatening, Hospitalization)
  Sender: FDA-Public Use
  Company Number: US-JNJFOC-20240353000

PATIENT
  Age: 18 Year
  Sex: Male

DRUGS (1)
  1. TYLENOL [Suspect]
     Active Substance: ACETAMINOPHEN
     Indication: Product used for unknown indication
     Route: 048

REACTIONS (11)
  - Nausea [Recovered/Resolved]
  - Vomiting [Recovered/Resolved]
  - Aspartate aminotransferase increased [Recovered/Resolved]
  - Alanine aminotransferase increased [Recovered/Resolved]
  - International normalised ratio increased [Recovered/Resolved]
  - Blood alkaline phosphatase increased [Recovered/Resolved]
  - Shock [Recovered/Resolved]
  - Mental impairment [Recovered/Resolved]
  - Acidosis [Recovered/Resolved]
  - Blood bicarbonate decreased [Recovered/Resolved]
  - Overdose [Unknown]
